FAERS Safety Report 5950837-2 (Version None)
Quarter: 2008Q4

REPORT INFORMATION
  Report Type: 
  Country: None (occurrence: None)
  Receive Date: 20081112
  Receipt Date: 20081103
  Transmission Date: 20090506
  Serious: Yes (Hospitalization, Other)
  Sender: FDA-Public Use
  Company Number: US-AMGEN-QUU317123

PATIENT
  Sex: Female

DRUGS (1)
  1. ENBREL [Suspect]
     Indication: RHEUMATOID ARTHRITIS
     Route: 058

REACTIONS (13)
  - BLOOD PRESSURE INCREASED [None]
  - CEREBROVASCULAR ACCIDENT [None]
  - CONVULSION [None]
  - CYSTITIS [None]
  - DIZZINESS [None]
  - FEELING ABNORMAL [None]
  - HEADACHE [None]
  - HIP ARTHROPLASTY [None]
  - HYPOTENSION [None]
  - INFLUENZA [None]
  - MIGRAINE [None]
  - VISUAL FIELD DEFECT [None]
  - VOMITING [None]
